FAERS Safety Report 5935709-1 (Version None)
Quarter: 2008Q4

REPORT INFORMATION
  Report Type: 
  Country: None (occurrence: None)
  Receive Date: 20081029
  Receipt Date: 20081029
  Transmission Date: 20090506
  Serious: Yes (Death)
  Sender: FDA-Public Use
  Company Number: None

PATIENT

DRUGS (1)
  1. NITROFURANTOIN [Suspect]
     Dosage: NITROFUR MAC 100MG

REACTIONS (7)
  - COLLAPSE OF LUNG [None]
  - DYSPNOEA [None]
  - HAEMOPTYSIS [None]
  - LUNG NEOPLASM [None]
  - MALAISE [None]
  - PNEUMONIA [None]
  - PULMONARY HAEMORRHAGE [None]
